FAERS Safety Report 18424637 (Version 4)
Quarter: 2021Q3

REPORT INFORMATION
  Report Type: Report from Study
  Country: ES (occurrence: ES)
  Receive Date: 20201026
  Receipt Date: 20210714
  Transmission Date: 20211014
  Serious: Yes (Other)
  Sender: FDA-Public Use
  Company Number: ES-AUROBINDO-AUR-APL-2020-053252

PATIENT
  Age: 68 Year
  Sex: Male

DRUGS (3)
  1. ERTAPENEM POWDER FOR CONCENTRATE FOR SOLUTION FOR INFUSION [Suspect]
     Active Substance: ERTAPENEM
     Indication: PROSTATITIS
  2. ERTAPENEM POWDER FOR CONCENTRATE FOR SOLUTION FOR INFUSION [Suspect]
     Active Substance: ERTAPENEM
     Indication: KLEBSIELLA INFECTION
     Dosage: 1 GRAM, ONCE A DAY (FOR 15 DAYS)
     Route: 065
  3. ERTAPENEM POWDER FOR CONCENTRATE FOR SOLUTION FOR INFUSION [Suspect]
     Active Substance: ERTAPENEM
     Indication: BACTERIAL PROSTATITIS
     Dosage: UNK
     Route: 065

REACTIONS (5)
  - Disorientation [Recovered/Resolved]
  - Fall [Recovered/Resolved]
  - Product use in unapproved indication [Unknown]
  - Neurotoxicity [Unknown]
  - Seizure [Recovered/Resolved]
